FAERS Safety Report 21897796 (Version 1)
Quarter: 2023Q1

REPORT INFORMATION
  Report Type: Spontaneous
  Country: CA (occurrence: CA)
  Receive Date: 20230123
  Receipt Date: 20230123
  Transmission Date: 20230418
  Serious: Yes (Other)
  Sender: FDA-Public Use
  Company Number: CA-BAXTER-2023BAX011011

PATIENT
  Age: 41 Year
  Sex: Male

DRUGS (6)
  1. CYCLOPHOSPHAMIDE [Suspect]
     Active Substance: CYCLOPHOSPHAMIDE
     Indication: Haematoma
     Dosage: 750 MG/M2, DOSAGE FORM: NOT SPECIFIED
     Route: 065
  2. RITUXIMAB [Suspect]
     Active Substance: RITUXIMAB
     Indication: Haematoma
     Dosage: 375.0 MG/M2, 1 EVERY 1 WEEKS
     Route: 041
  3. EMICIZUMAB [Suspect]
     Active Substance: EMICIZUMAB
     Indication: Acquired haemophilia
     Dosage: 1.5 MG/KG, 1 EVERY 1 WEEKS
     Route: 058
  4. EMICIZUMAB [Suspect]
     Active Substance: EMICIZUMAB
     Dosage: 3.0 MG/KG, 1 EVERY 1 WEEKS
     Route: 058
  5. FILGRASTIM [Concomitant]
     Active Substance: FILGRASTIM
     Indication: Neutropenia
     Dosage: UNK
     Route: 065
  6. PREDNISONE [Concomitant]
     Active Substance: PREDNISONE
     Indication: Haematoma
     Dosage: 1.0 MG/KG, DOSAGE FORM: NOT SPECIFIED
     Route: 065

REACTIONS (4)
  - Off label use [Unknown]
  - Coronavirus infection [Unknown]
  - Respiratory syncytial virus infection [Unknown]
  - Scrotal cellulitis [Unknown]
